FAERS Safety Report 4450789-0 (Version None)
Quarter: 2004Q3

REPORT INFORMATION
  Report Type: 
  Country: None (occurrence: None)
  Receive Date: 20040916
  Receipt Date: 20040913
  Transmission Date: 20050211
  Serious: Yes (Death)
  Sender: FDA-Public Use
  Company Number: US-JNJFOC-20040804794

PATIENT
  Sex: Female

DRUGS (1)
  1. PANCRASE [Suspect]
     Indication: PANCREATIC INSUFFICIENCY

REACTIONS (1)
  - URINARY TRACT INFECTION [None]
